FAERS Safety Report 15235560 (Version 1)
Quarter: 2018Q3

REPORT INFORMATION
  Report Type: Spontaneous
  Country: US (occurrence: US)
  Receive Date: 20180803
  Receipt Date: 20180803
  Transmission Date: 20181010
  Serious: No
  Sender: FDA-Public Use
  Company Number: US-PFIZER INC-2018309793

PATIENT
  Age: 13 Year
  Sex: Male
  Weight: 45.36 kg

DRUGS (5)
  1. GABAPENTIN. [Suspect]
     Active Substance: GABAPENTIN
     Indication: MUSCULAR DYSTROPHY
     Dosage: 300 MG, DAILY
     Dates: start: 2014
  2. GABAPENTIN. [Suspect]
     Active Substance: GABAPENTIN
     Indication: MYOPATHY
     Dosage: 1500 MG, DAILY
  3. DIAZEPAM. [Concomitant]
     Active Substance: DIAZEPAM
     Dosage: 2 MG, 2X/DAY
  4. CELEBREX [Concomitant]
     Active Substance: CELECOXIB
     Dosage: 50 MG, 2X/DAY
  5. BACLOSAN [Concomitant]
     Active Substance: BACLOFEN
     Dosage: 60 MG, DAILY

REACTIONS (1)
  - Drug ineffective for unapproved indication [Unknown]
